FAERS Safety Report 14881808 (Version 1)
Quarter: 2018Q2

REPORT INFORMATION
  Report Type: Report from Study
  Country: US (occurrence: US)
  Receive Date: 20180511
  Receipt Date: 20180511
  Transmission Date: 20180711
  Serious: Yes (Hospitalization, Other)
  Sender: FDA-Public Use
  Company Number: US-BRISTOL-MYERS SQUIBB COMPANY-BMS-2018-041775

PATIENT
  Age: 81 Year
  Sex: Female
  Weight: 56.9 kg

DRUGS (1)
  1. NIVOLUMAB [Suspect]
     Active Substance: NIVOLUMAB
     Indication: RENAL CELL CARCINOMA
     Dosage: 240 MG, UNK
     Route: 042
     Dates: start: 20180307, end: 20180307

REACTIONS (4)
  - Cardiac failure congestive [Unknown]
  - Dyspnoea [Unknown]
  - Gastrointestinal haemorrhage [Unknown]
  - Pneumonia [Unknown]

NARRATIVE: CASE EVENT DATE: 20180317
